FAERS Safety Report 8298482-0 (Version None)
Quarter: 2012Q2

REPORT INFORMATION
  Report Type: 
  Country: None (occurrence: None)
  Receive Date: 20120419
  Receipt Date: 20120417
  Transmission Date: 20120825
  Serious: Yes (Death, Hospitalization)
  Sender: FDA-Public Use
  Company Number: FR-SANOFI-AVENTIS-2012SA026448

PATIENT
  Age: 54 Year
  Sex: Male

DRUGS (4)
  1. TAXOTERE [Suspect]
     Route: 042
     Dates: start: 20111129, end: 20120201
  2. CYCLOPHOSPHAMIDE [Suspect]
     Dosage: 1000 MG LYOPHILISATE
     Route: 042
     Dates: start: 20111129, end: 20120201
  3. CISPLATIN [Suspect]
     Route: 042
     Dates: start: 20111129, end: 20120201
  4. ETOPOSIDE [Suspect]
     Dosage: 20 MG/ML
     Route: 042
     Dates: start: 20111129, end: 20120201

REACTIONS (4)
  - PYREXIA [None]
  - NAUSEA [None]
  - FEBRILE BONE MARROW APLASIA [None]
  - VOMITING [None]
